FAERS Safety Report 4530768-5 (Version None)
Quarter: 2004Q4

REPORT INFORMATION
  Report Type: 
  Country: None (occurrence: None)
  Receive Date: 20041129
  Receipt Date: 20040601
  Transmission Date: 20050328
  Serious: Yes (Hospitalization)
  Sender: FDA-Public Use
  Company Number: USA040668956

PATIENT
  Age: 19 Year
  Sex: Female

DRUGS (1)
  1. ZYPREXA [Suspect]
     Indication: ANOREXIA
     Dosage: 10 MG DAY

REACTIONS (2)
  - DRUG INEFFECTIVE [None]
  - UNDERWEIGHT [None]
